FAERS Safety Report 13133574 (Version 1)
Quarter: 2017Q1

REPORT INFORMATION
  Report Type: Report from Study
  Country: ZA (occurrence: ZA)
  Receive Date: 20170120
  Receipt Date: 20170120
  Transmission Date: 20170428
  Serious: Yes (Life-Threatening)
  Sender: FDA-Public Use
  Company Number: PHHY2016ZA175622

PATIENT
  Age: 26 Year
  Sex: Female

DRUGS (1)
  1. TASIGNA [Suspect]
     Active Substance: NILOTINIB
     Indication: CHRONIC MYELOID LEUKAEMIA
     Dosage: 400 MG, BID
     Route: 048
     Dates: start: 201609, end: 20161213

REACTIONS (2)
  - Therapy non-responder [Unknown]
  - Blast crisis in myelogenous leukaemia [Recovering/Resolving]

NARRATIVE: CASE EVENT DATE: 20161212
